FAERS Safety Report 6567098-6 (Version None)
Quarter: 2010Q1

REPORT INFORMATION
  Report Type: 
  Country: None (occurrence: None)
  Receive Date: 20100127
  Receipt Date: 20100114
  Transmission Date: 20100710
  Serious: Yes (Hospitalization)
  Sender: FDA-Public Use
  Company Number: 1000011437

PATIENT
  Age: 31 Year
  Sex: Female

DRUGS (2)
  1. ESCITALOPRAM [Suspect]
     Indication: DEPRESSION
     Dosage: 10 MG, (10 MG, 1 IN 1 D), ORAL
     Route: 048
  2. STEMETIL [Suspect]
     Indication: VOMITING
     Dosage: 30 MG, (10 MG, 3 IN 1 D), ORAL
     Route: 048
     Dates: start: 20091208, end: 20091213

REACTIONS (4)
  - BINOCULAR EYE MOVEMENT DISORDER [None]
  - DRUG INTERACTION [None]
  - EYE MOVEMENT DISORDER [None]
  - TREMOR [None]
